FAERS Safety Report 12731288 (Version 1)
Quarter: 2016Q3

REPORT INFORMATION
  Report Type: Spontaneous
  Country: PL (occurrence: PL)
  Receive Date: 20160912
  Receipt Date: 20160912
  Transmission Date: 20161109
  Serious: Yes (Hospitalization)
  Sender: FDA-Public Use
  Company Number: PL-ABBVIE-16K-129-1719335-00

PATIENT
  Age: 58 Year
  Sex: Male

DRUGS (3)
  1. MEPRELON [Concomitant]
     Indication: PRODUCT USED FOR UNKNOWN INDICATION
  2. HUMIRA [Suspect]
     Active Substance: ADALIMUMAB
     Indication: RHEUMATOID ARTHRITIS
     Route: 058
  3. METHOTREXATE. [Concomitant]
     Active Substance: METHOTREXATE
     Indication: PRODUCT USED FOR UNKNOWN INDICATION

REACTIONS (6)
  - Purulence [Unknown]
  - Abdominal lymphadenopathy [Unknown]
  - Arthritis [Unknown]
  - Bone erosion [Unknown]
  - C-reactive protein increased [Unknown]
  - Arthralgia [Unknown]
